FAERS Safety Report 5693476-3 (Version None)
Quarter: 2008Q2

REPORT INFORMATION
  Report Type: 
  Country: None (occurrence: None)
  Receive Date: 20080402
  Receipt Date: 20080402
  Transmission Date: 20081010
  Serious: Yes (Other)
  Sender: FDA-Public Use
  Company Number: None

PATIENT
  Age: 39 Year
  Sex: Male
  Weight: 77 kg

DRUGS (2)
  1. INVEGA [Suspect]
     Indication: PSYCHOTIC DISORDER
     Dosage: 3MG-6MG TITRATED DAILY PO
     Route: 048
     Dates: start: 20080321, end: 20080322
  2. SEROQUEL [Suspect]
     Dosage: 50MG-100MG TITRATED BID PO
     Route: 048
     Dates: start: 20080326, end: 20080330

REACTIONS (1)
  - NEUROLEPTIC MALIGNANT SYNDROME [None]
